FAERS Safety Report 5629379-X (Version None)
Quarter: 2008Q1

REPORT INFORMATION
  Report Type: 
  Country: None (occurrence: None)
  Receive Date: 20080213
  Receipt Date: 20080213
  Transmission Date: 20080703
  Serious: No
  Sender: FDA-Public Use
  Company Number: None

PATIENT
  Sex: Female
  Weight: 63.5036 kg

DRUGS (4)
  1. BUPROPION HYDROCHLORIDE XL [Suspect]
     Indication: ANXIETY
     Dosage: 300 MG  1 X DAILY
     Dates: start: 20070901
  2. BUPROPION HYDROCHLORIDE XL [Suspect]
     Indication: DEPRESSION
     Dosage: 300 MG  1 X DAILY
     Dates: start: 20070901
  3. BUPROPION HYDROCHLORIDE XL [Suspect]
     Indication: ANXIETY
     Dosage: 300 MG  1 X DAILY
     Dates: start: 20071101
  4. BUPROPION HYDROCHLORIDE XL [Suspect]
     Indication: DEPRESSION
     Dosage: 300 MG  1 X DAILY
     Dates: start: 20071101

REACTIONS (3)
  - MALAISE [None]
  - PHARMACEUTICAL PRODUCT COMPLAINT [None]
  - STRESS [None]
